FAERS Safety Report 18095857 (Version 2)
Quarter: 2021Q4

REPORT INFORMATION
  Report Type: Other
  Country: BG (occurrence: BG)
  Receive Date: 20200731
  Receipt Date: 20211021
  Transmission Date: 20220303
  Serious: Yes (Hospitalization)
  Sender: FDA-Public Use
  Company Number: BG-ROCHE-2650549

PATIENT
  Age: 51 Year
  Sex: Female
  Weight: 55 kg

DRUGS (4)
  1. TRASTUZUMAB [Suspect]
     Active Substance: TRASTUZUMAB
     Indication: HER2 positive breast cancer
     Route: 042
     Dates: start: 20170802
  2. PERTUZUMAB [Suspect]
     Active Substance: PERTUZUMAB
     Indication: HER2 positive breast cancer
     Route: 042
     Dates: start: 20170802
  3. DOCETAXEL [Suspect]
     Active Substance: DOCETAXEL
     Indication: HER2 positive breast cancer
     Dosage: MOST RECENT DOSE OF DOCETAXEL ON 20/NOV/2017
     Route: 042
     Dates: start: 20170802
  4. ANASTROZOLE [Suspect]
     Active Substance: ANASTROZOLE
     Indication: HER2 positive breast cancer
     Route: 048
     Dates: start: 20180703, end: 20210101

REACTIONS (1)
  - Brain neoplasm [Recovered/Resolved]

NARRATIVE: CASE EVENT DATE: 20200430
